FAERS Safety Report 14505056 (Version 3)
Quarter: 2020Q3

REPORT INFORMATION
  Report Type: Spontaneous
  Country: US (occurrence: US)
  Receive Date: 20180208
  Receipt Date: 20200819
  Transmission Date: 20201102
  Serious: No
  Sender: FDA-Public Use
  Company Number: US-JNJFOC-20180133054

PATIENT
  Age: 1 Decade
  Sex: Male

DRUGS (1)
  1. RISPERDAL [Suspect]
     Active Substance: RISPERIDONE
     Indication: ATTENTION DEFICIT HYPERACTIVITY DISORDER
     Dosage: IN VARYING DOSES OF 0.5 MG AND 1 MG
     Route: 048
     Dates: start: 2007, end: 2013

REACTIONS (5)
  - Off label use [Unknown]
  - Emotional disorder [Unknown]
  - Product use in unapproved indication [Unknown]
  - Gynaecomastia [Recovering/Resolving]
  - Therapy cessation [Unknown]

NARRATIVE: CASE EVENT DATE: 2007
